FAERS Safety Report 5127329-6 (Version None)
Quarter: 2006Q4

REPORT INFORMATION
  Report Type: 
  Country: None (occurrence: None)
  Receive Date: 20061010
  Receipt Date: 20060928
  Transmission Date: 20070319
  Serious: Yes (Hospitalization)
  Sender: FDA-Public Use
  Company Number: S06-FRA-04065-01

PATIENT
  Age: 43 Year
  Sex: Female

DRUGS (3)
  1. AOTAL (ACAMPROSATE) [Suspect]
     Indication: ALCOHOLISM
     Dates: start: 20040701, end: 20041101
  2. PAROXETINE HYDROCHLORIDE [Suspect]
  3. OXAZEPAM [Suspect]

REACTIONS (2)
  - CAROTID ARTERY STENOSIS [None]
  - CEREBROVASCULAR ACCIDENT [None]
